FAERS Safety Report 14821749 (Version 1)
Quarter: 2018Q2

REPORT INFORMATION
  Report Type: Spontaneous
  Country: FR (occurrence: FR)
  Receive Date: 20180427
  Receipt Date: 20180427
  Transmission Date: 20180711
  Serious: Yes (Death, Other)
  Sender: FDA-Public Use
  Company Number: FR-BRISTOL-MYERS SQUIBB COMPANY-BMS-2018-037166

PATIENT
  Age: 73 Year
  Sex: Male
  Weight: 60 kg

DRUGS (1)
  1. ELIQUIS [Suspect]
     Active Substance: APIXABAN
     Indication: CEREBROVASCULAR ACCIDENT PROPHYLAXIS
     Dosage: 10 MG, DAILY
     Route: 048
     Dates: start: 20170101, end: 20180220

REACTIONS (2)
  - Ischaemic stroke [Fatal]
  - Drug ineffective [Fatal]

NARRATIVE: CASE EVENT DATE: 20180220
